FAERS Safety Report 8451579-4 (Version None)
Quarter: 2012Q2

REPORT INFORMATION
  Report Type: 
  Country: None (occurrence: None)
  Receive Date: 20120620
  Receipt Date: 20120611
  Transmission Date: 20120825
  Serious: Yes (Other)
  Sender: FDA-Public Use
  Company Number: CA-JNJFOC-20120605447

PATIENT
  Sex: Male
  Weight: 61 kg

DRUGS (7)
  1. REMICADE [Suspect]
     Indication: RHEUMATOID ARTHRITIS
     Route: 042
     Dates: start: 20111206
  2. EYE DROPS (UNSPECIFIED) [Concomitant]
     Route: 065
  3. REMICADE [Suspect]
     Route: 042
     Dates: start: 20120411
  4. HYDROMORPH [Concomitant]
     Dosage: SLOW RELEASE + FAST
     Route: 065
  5. PREDNISONE TAB [Concomitant]
     Route: 065
  6. CELEBREX [Concomitant]
     Route: 065
  7. FOLIC ACID [Concomitant]
     Route: 065

REACTIONS (4)
  - FATIGUE [None]
  - HYPERSOMNIA [None]
  - PRODUCTIVE COUGH [None]
  - MENISCUS LESION [None]
